FAERS Safety Report 7537724-3 (Version None)
Quarter: 2011Q2

REPORT INFORMATION
  Report Type: 
  Country: None (occurrence: None)
  Receive Date: 20110609
  Receipt Date: 20071105
  Transmission Date: 20111010
  Serious: Yes (Death, Hospitalization)
  Sender: FDA-Public Use
  Company Number: PHBS2006BR18767

PATIENT
  Age: 66 Year
  Sex: Female

DRUGS (9)
  1. VENALOT [Concomitant]
     Dosage: 1 TABLET/DAY
     Route: 048
     Dates: start: 19980101
  2. ALLOPURINOL [Concomitant]
     Dates: start: 20070501
  3. EXFORGE [Suspect]
     Indication: HYPERTENSION
     Dosage: VALS 80 / AMLO 5 MG/DAY
     Dates: start: 20061127
  4. GLYBURIDE [Concomitant]
     Indication: DIABETES MELLITUS
     Dosage: 5 MG, QD
     Route: 048
     Dates: start: 19980101
  5. INSULIN [Concomitant]
     Indication: DIABETES MELLITUS
     Route: 058
     Dates: start: 20060901
  6. METFORMIN HYDROCHLORIDE [Concomitant]
     Indication: DIABETES MELLITUS
     Dosage: 850 MG, TID
     Route: 048
     Dates: start: 19980101
  7. BACTRIM [Concomitant]
     Indication: URINARY TRACT INFECTION
     Route: 048
  8. METICORTEN [Concomitant]
     Dates: start: 20070501
  9. AMLODIPINE [Concomitant]
     Dates: start: 20070101

REACTIONS (5)
  - BLOOD CHOLESTEROL ABNORMAL [None]
  - HYPERTENSION [None]
  - INCORRECT DRUG DOSAGE FORM ADMINISTERED [None]
  - SYSTEMIC LUPUS ERYTHEMATOSUS [None]
  - MULTI-ORGAN FAILURE [None]
